FAERS Safety Report 7314745-7 (Version None)
Quarter: 2011Q1

REPORT INFORMATION
  Report Type: 
  Country: None (occurrence: None)
  Receive Date: 20110225
  Receipt Date: 20101124
  Transmission Date: 20110831
  Serious: No
  Sender: FDA-Public Use
  Company Number: US-MYLANLABS-2010S1021755

PATIENT
  Age: 24 Year
  Sex: Female

DRUGS (3)
  1. AMNESTEEM [Suspect]
     Route: 048
     Dates: start: 20100901, end: 20101101
  2. AMNESTEEM [Suspect]
     Indication: ACNE CYSTIC
     Route: 048
     Dates: start: 20100901, end: 20101101
  3. ORAL CONTRACEPTIVE NOS [Concomitant]

REACTIONS (3)
  - NIGHT BLINDNESS [None]
  - MYALGIA [None]
  - DIZZINESS [None]
